FAERS Safety Report 10446336 (Version 2)
Quarter: 2014Q4

REPORT INFORMATION
  Report Type: Spontaneous
  Country: US (occurrence: US)
  Receive Date: 20140911
  Receipt Date: 20141002
  Transmission Date: 20150528
  Serious: Yes (Hospitalization)
  Sender: FDA-Public Use
  Company Number: US-BIOGENIDEC-2014BI092525

PATIENT
  Sex: Male

DRUGS (1)
  1. TYSABRI [Suspect]
     Active Substance: NATALIZUMAB
     Indication: MULTIPLE SCLEROSIS
     Route: 042
     Dates: start: 20100908, end: 20130114

REACTIONS (5)
  - Suicide attempt [Unknown]
  - Mental disorder [Not Recovered/Not Resolved]
  - Suicidal ideation [Unknown]
  - Adverse drug reaction [Unknown]
  - Drug ineffective [Unknown]
